FAERS Safety Report 8646899 (Version 3)
Quarter: 2012Q4

REPORT INFORMATION
  Report Type: 
  Country: FR (occurrence: FR)
  Receive Date: 20120703
  Receipt Date: 20120828
  Transmission Date: 20130627
  Serious: Yes (Hospitalization)
  Sender: FDA-Public Use
  Company Number: FR-SANOFI-AVENTIS-2012SA045092

PATIENT
  Age: 60 Year
  Sex: Female

DRUGS (8)
  1. PLAVIX [Suspect]
     Indication: DRUG USE FOR UNKNOWN INDICATION
     Route: 048
     Dates: end: 20120220
  2. ATRIPLA [Suspect]
     Indication: HIV INFECTION
     Route: 048
     Dates: end: 20120220
  3. TARKA [Suspect]
     Indication: HYPERTENSION ARTERIAL
     Route: 048
     Dates: end: 20120218
  4. FLUDEX [Suspect]
     Indication: HYPERTENSION ARTERIAL
     Route: 048
     Dates: end: 20120218
  5. MEDIATENSYL [Suspect]
     Indication: HYPERTENSION ARTERIAL
     Route: 048
     Dates: end: 20120220
  6. ACTONEL [Suspect]
     Indication: DRUG USE FOR UNKNOWN INDICATION
     Route: 048
     Dates: end: 20120220
  7. INEGY [Concomitant]
     Route: 048
  8. IMOVANE [Concomitant]
     Route: 048

REACTIONS (1)
  - Renal tubular disorder [Recovered/Resolved with Sequelae]
